FAERS Safety Report 12667845 (Version 1)
Quarter: 2016Q3

REPORT INFORMATION
  Report Type: Spontaneous
  Country: US (occurrence: US)
  Receive Date: 20160819
  Receipt Date: 20160819
  Transmission Date: 20161109
  Serious: No
  Sender: FDA-Public Use
  Company Number: US-WATSON-2016-12544

PATIENT
  Age: 13 Year
  Sex: Male

DRUGS (2)
  1. CLONIDINE. [Suspect]
     Active Substance: CLONIDINE
     Indication: AUTONOMIC NERVOUS SYSTEM IMBALANCE
     Dosage: 0.2 MG, Q5DAYS
     Route: 062
  2. CLONIDINE. [Suspect]
     Active Substance: CLONIDINE
     Dosage: UNK, UNKNOWN
     Route: 062

REACTIONS (4)
  - Mydriasis [Recovered/Resolved]
  - Drug ineffective [Recovered/Resolved]
  - Heart rate increased [Recovered/Resolved]
  - Hyperhidrosis [Recovered/Resolved]
